FAERS Safety Report 11945321 (Version 1)
Quarter: 2016Q1

REPORT INFORMATION
  Report Type: Spontaneous
  Country: None (occurrence: CN)
  Receive Date: 20160125
  Receipt Date: 20160125
  Transmission Date: 20160526
  Serious: Yes (Other)
  Sender: FDA-Public Use
  Company Number: CN-MERCK KGAA-1046868

PATIENT

DRUGS (1)
  1. NOVOTHYROX [Suspect]
     Active Substance: LEVOTHYROXINE SODIUM

REACTIONS (6)
  - Pneumonia [None]
  - Blood thyroid stimulating hormone increased [None]
  - Local swelling [None]
  - Thyroxine free increased [None]
  - Neck pain [None]
  - Reverse tri-iodothyronine decreased [None]
